FAERS Safety Report 15279762 (Version 4)
Quarter: 2018Q3

REPORT INFORMATION
  Report Type: Spontaneous
  Country: NL (occurrence: NL)
  Receive Date: 20180815
  Receipt Date: 20180928
  Transmission Date: 20181010
  Serious: Yes (Other)
  Sender: FDA-Public Use
  Company Number: NL-009507513-1808NLD005650

PATIENT
  Age: 16 Year
  Sex: Female

DRUGS (1)
  1. DESLORATADINE. [Suspect]
     Active Substance: DESLORATADINE
     Indication: RHINITIS ALLERGIC
     Dosage: UNK
     Route: 048

REACTIONS (4)
  - Suicidal ideation [Recovering/Resolving]
  - Suicidal ideation [Unknown]
  - Depression [Recovering/Resolving]
  - Depression [Unknown]
